FAERS Safety Report 4402879-6 (Version None)
Quarter: 2004Q3

REPORT INFORMATION
  Report Type: 
  Country: None (occurrence: None)
  Receive Date: 20040720
  Receipt Date: 20040720
  Transmission Date: 20050211
  Serious: Yes (Other)
  Sender: FDA-Public Use
  Company Number: None

PATIENT
  Age: 26 Year
  Sex: Female
  Weight: 113.3993 kg

DRUGS (1)
  1. RITUXAN [Suspect]
     Indication: FOLLICLE CENTRE LYMPHOMA, FOLLICULAR GRADE I, II, III
     Dosage: 375 MG/M2 WKLY X 4, 4 WKS OFF THEN REPEATED
     Dates: start: 20030113

REACTIONS (4)
  - ASTHENIA [None]
  - FALL [None]
  - NEUROPATHY [None]
  - PAIN [None]
